FAERS Safety Report 13416399 (Version 1)
Quarter: 2017Q2

REPORT INFORMATION
  Report Type: Spontaneous
  Country: GB (occurrence: GB)
  Receive Date: 20170407
  Receipt Date: 20170407
  Transmission Date: 20170830
  Serious: Yes (Other)
  Sender: FDA-Public Use
  Company Number: US-BRAINTREE LABORATORIES-170128-2

PATIENT
  Sex: Female

DRUGS (1)
  1. IZINOVA [Suspect]
     Active Substance: MAGNESIUM SULFATE\POTASSIUM SULFATE\SODIUM SULFATE
     Indication: COLONOSCOPY
     Dosage: 1.5X6 OZ.BOTTLE
     Route: 048
     Dates: start: 20170219, end: 20170220

REACTIONS (7)
  - Wrong technique in product usage process [None]
  - Abdominal pain [None]
  - Colitis [None]
  - Product taste abnormal [None]
  - Haematemesis [None]
  - Abdominal pain upper [None]
  - Nausea [None]

NARRATIVE: CASE EVENT DATE: 20170219
